FAERS Safety Report 5922213-X (Version None)
Quarter: 2008Q4

REPORT INFORMATION
  Report Type: 
  Country: None (occurrence: None)
  Receive Date: 20081017
  Receipt Date: 20080529
  Transmission Date: 20090506
  Serious: Yes (Hospitalization)
  Sender: FDA-Public Use
  Company Number: JP-ASTRAZENECA-2008SE02904

PATIENT
  Age: 30694 Day
  Sex: Female
  Weight: 50 kg

DRUGS (14)
  1. BLOPRESS [Suspect]
     Indication: CARDIAC FAILURE CHRONIC
     Route: 048
     Dates: start: 20070420
  2. GASMOTIN [Concomitant]
     Indication: GASTRITIS
     Route: 048
  3. SELBEX [Concomitant]
     Indication: GASTRITIS
     Route: 048
  4. HOKUNALIN TAPE [Concomitant]
     Indication: ASTHMA
     Route: 062
  5. SINGULAIR [Concomitant]
     Indication: ASTHMA
     Route: 048
  6. THEO-DUR [Concomitant]
     Indication: ASTHMA
     Route: 048
  7. PRAVASTATIN SODIUM [Concomitant]
     Indication: HYPERLIPIDAEMIA
     Route: 048
  8. DEPAS [Concomitant]
     Indication: NEUROSIS
     Route: 048
  9. ALDACTONE [Concomitant]
     Indication: CARDIAC FAILURE CHRONIC
     Route: 048
  10. LASIX [Concomitant]
     Indication: CARDIAC FAILURE CHRONIC
     Route: 048
  11. ALTAT [Concomitant]
     Indication: GASTRITIS
     Route: 048
  12. MAGNESIUM OXIDE [Concomitant]
     Indication: CONSTIPATION
     Route: 048
  13. FRANDOL TAPE [Concomitant]
     Indication: ANGINA PECTORIS
     Route: 062
  14. WARFARIN SODIUM [Concomitant]
     Indication: THROMBOSIS PROPHYLAXIS
     Route: 048
     Dates: start: 20070506

REACTIONS (1)
  - PYELONEPHRITIS ACUTE [None]
